FAERS Safety Report 5241626-5 (Version None)
Quarter: 2007Q1

REPORT INFORMATION
  Report Type: 
  Country: None (occurrence: None)
  Receive Date: 20070220
  Receipt Date: 20070208
  Transmission Date: 20070707
  Serious: Yes (Hospitalization)
  Sender: FDA-Public Use
  Company Number: JP-ROCHE-478453

PATIENT
  Age: 43 Year
  Sex: Male
  Weight: 58 kg

DRUGS (2)
  1. PEGASYS [Suspect]
     Route: 058
     Dates: start: 20061104, end: 20061225
  2. OLMETEC [Concomitant]
     Route: 048
     Dates: start: 20060826

REACTIONS (1)
  - NEPHROTIC SYNDROME [None]
